FAERS Safety Report 14671572 (Version 1)
Quarter: 2018Q1

REPORT INFORMATION
  Report Type: Spontaneous
  Country: US (occurrence: US)
  Receive Date: 20180323
  Receipt Date: 20180323
  Transmission Date: 20180509
  Serious: No
  Sender: FDA-Public Use
  Company Number: US-LUPIN PHARMACEUTICALS INC.-2017-00842

PATIENT
  Sex: Female
  Weight: 81.65 kg

DRUGS (6)
  1. SERTRALINE HYDROCHLORIDE TABLETS USP, 100 MG [Suspect]
     Active Substance: SERTRALINE HYDROCHLORIDE
     Dosage: AT NIGHT
     Route: 048
     Dates: start: 2012
  2. BUPROPION XL [Concomitant]
     Active Substance: BUPROPION
     Indication: PROPHYLAXIS
     Dosage: 150 MG,QD,
     Route: 048
     Dates: start: 201003
  3. LYRICA [Concomitant]
     Active Substance: PREGABALIN
     Indication: RESTLESS LEGS SYNDROME
     Dosage: 300 MG MORNING AND ADDITIONAL 150 MG AT NIGHT TIME
     Route: 048
     Dates: start: 2011, end: 2016
  4. ATORVASTATIN [Concomitant]
     Active Substance: ATORVASTATIN
     Indication: BLOOD CHOLESTEROL INCREASED
     Dosage: 20 MG,QD,
     Route: 048
  5. BUPROPION XL [Concomitant]
     Active Substance: BUPROPION
     Indication: SUICIDAL IDEATION
  6. HECORAI [Concomitant]
     Indication: LIVER TRANSPLANT
     Dosage: 4 MG,BID,
     Route: 048
     Dates: start: 201003

REACTIONS (2)
  - Wrong technique in product usage process [Unknown]
  - Drug ineffective [Unknown]
